FAERS Safety Report 8258072-2 (Version None)
Quarter: 2012Q2

REPORT INFORMATION
  Report Type: 
  Country: None (occurrence: None)
  Receive Date: 20120404
  Receipt Date: 20120326
  Transmission Date: 20120825
  Serious: Yes (Hospitalization)
  Sender: FDA-Public Use
  Company Number: JP-JNJFOC-20120205844

PATIENT
  Sex: Female
  Weight: 39 kg

DRUGS (12)
  1. ZOLOFT [Suspect]
     Indication: DEPRESSION
     Dosage: 25-100/DAY
     Route: 048
     Dates: start: 20111101, end: 20111221
  2. ZOLOFT [Suspect]
     Route: 048
     Dates: start: 20111001, end: 20111101
  3. MAGMITT [Concomitant]
     Indication: CONSTIPATION
     Dosage: 100-600/DAY
     Route: 048
     Dates: start: 20111114, end: 20120201
  4. LENDORMIN [Concomitant]
     Route: 048
     Dates: start: 20120125, end: 20120201
  5. RISPERDAL [Suspect]
     Indication: DELUSION
     Dosage: 0.5-2 MG/DAY
     Route: 048
     Dates: start: 20111001, end: 20120125
  6. RISPERDAL [Suspect]
     Indication: DEPRESSION
     Dosage: 0.5-2 MG/DAY
     Route: 048
     Dates: start: 20111001, end: 20120125
  7. LEXAPRO [Suspect]
     Dosage: 10-20/DAY
     Route: 048
     Dates: start: 20111221
  8. LEXAPRO [Suspect]
     Indication: DEPRESSION
     Route: 048
     Dates: start: 20120125, end: 20120201
  9. ZOLOFT [Suspect]
     Dosage: 25-100/DAY
     Route: 048
     Dates: start: 20111101, end: 20111221
  10. DOGMATYL [Concomitant]
     Route: 048
     Dates: start: 20120125, end: 20120201
  11. ZOLOFT [Suspect]
     Indication: DELUSION
     Route: 048
     Dates: start: 20111001, end: 20111101
  12. SENNOSIDE [Concomitant]
     Indication: CONSTIPATION
     Route: 048
     Dates: start: 20111121, end: 20120201

REACTIONS (1)
  - HEPATIC FUNCTION ABNORMAL [None]
